FAERS Safety Report 13530005 (Version 1)
Quarter: 2017Q2

REPORT INFORMATION
  Report Type: Spontaneous
  Country: None (occurrence: GB)
  Receive Date: 20170509
  Receipt Date: 20170509
  Transmission Date: 20170830
  Serious: Yes (Disabling, Other)
  Sender: FDA-Public Use
  Company Number: GB-XIROMED, LLC-2020491

PATIENT
  Age: 71 Year
  Sex: Female
  Weight: 51.15 kg

DRUGS (7)
  1. GAVISCON [Suspect]
     Active Substance: ALUMINUM HYDROXIDE\MAGNESIUM CARBONATE
     Route: 048
     Dates: start: 20130101, end: 20161101
  2. QUININE [Concomitant]
     Active Substance: QUININE
  3. OMEPRAZOLE. [Suspect]
     Active Substance: OMEPRAZOLE
     Route: 048
     Dates: start: 20130101, end: 20161101
  4. LANSOPRAZOLE. [Suspect]
     Active Substance: LANSOPRAZOLE
     Indication: GASTROOESOPHAGEAL REFLUX DISEASE
     Route: 048
     Dates: start: 20130101, end: 20161101
  5. BUCCASTEM [Concomitant]
  6. IODINE. [Concomitant]
     Active Substance: IODINE
  7. VALIUM [Concomitant]
     Active Substance: DIAZEPAM

REACTIONS (4)
  - Accidental overdose [Recovered/Resolved]
  - Product label confusion [Recovered/Resolved]
  - Drug hypersensitivity [Recovering/Resolving]
  - Gastrooesophageal reflux disease [Recovering/Resolving]

NARRATIVE: CASE EVENT DATE: 20130107
